FAERS Safety Report 6152921-X (Version None)
Quarter: 2009Q2

REPORT INFORMATION
  Report Type: 
  Country: None (occurrence: None)
  Receive Date: 20090413
  Receipt Date: 20090402
  Transmission Date: 20091009
  Serious: Yes (Hospitalization)
  Sender: FDA-Public Use
  Company Number: DE-ELI_LILLY_AND_COMPANY-DE200904000689

PATIENT
  Age: 63 Year
  Sex: Female

DRUGS (7)
  1. CYMBALTA [Suspect]
     Dosage: 60 MG, DAILY (1/D)
     Route: 065
     Dates: start: 20061024, end: 20061107
  2. LAMICTAL [Interacting]
     Indication: EPILEPSY
     Dosage: 200 MG, DAILY (1/D)
     Route: 065
     Dates: start: 20061008
  3. LAMICTAL [Interacting]
     Dosage: 225 MG, DAILY (1/D)
     Route: 065
     Dates: start: 20061009, end: 20061019
  4. LAMICTAL [Interacting]
     Dosage: 250 MG, DAILY (1/D)
     Route: 065
     Dates: start: 20061020, end: 20061122
  5. PRESOMEN                           /00073001/ [Concomitant]
     Dosage: 0.3 MG, DAILY (1/D)
     Route: 065
     Dates: start: 20061009, end: 20061122
  6. NEXIUM [Concomitant]
     Dosage: 20 MG, DAILY (1/D)
     Route: 065
     Dates: start: 20061009, end: 20061108
  7. MUSARIL [Concomitant]
     Dosage: 25 MG, DAILY (1/D)
     Route: 065
     Dates: start: 20061020, end: 20061116

REACTIONS (2)
  - DRUG INTERACTION [None]
  - LEUKOPENIA [None]
